FAERS Safety Report 6043596-9 (Version None)
Quarter: 2009Q1

REPORT INFORMATION
  Report Type: 
  Country: None (occurrence: None)
  Receive Date: 20090115
  Receipt Date: 20090115
  Transmission Date: 20090719
  Serious: Yes (Other)
  Sender: FDA-Public Use
  Company Number: None

PATIENT
  Age: 37 Year
  Sex: Male
  Weight: 65 kg

DRUGS (1)
  1. SUCCINYLCHOLINE CHLORIDE [Suspect]
     Indication: NEUROMUSCULAR BLOCKADE
     Dosage: UNKNOWN UNKNOWN IV BOLUS
     Route: 040
     Dates: start: 20081130, end: 20081130

REACTIONS (4)
  - DRUG EFFECT PROLONGED [None]
  - NEUROMUSCULAR BLOCK PROLONGED [None]
  - PARALYSIS [None]
  - POST PROCEDURAL COMPLICATION [None]
